FAERS Safety Report 8536885-7 (Version None)
Quarter: 2012Q3

REPORT INFORMATION
  Report Type: 
  Country: None (occurrence: None)
  Receive Date: 20120725
  Receipt Date: 20120717
  Transmission Date: 20120928
  Serious: Yes (Hospitalization, Other)
  Sender: FDA-Public Use
  Company Number: BR-ASTRAZENECA-2012SE50890

PATIENT
  Age: 75 Year
  Sex: Female
  Weight: 68 kg

DRUGS (7)
  1. CRESTOR [Suspect]
     Indication: BLOOD CHOLESTEROL INCREASED
     Route: 048
     Dates: start: 20080101, end: 20090101
  2. FORMOTEROL FUMARATE [Concomitant]
     Indication: EMPHYSEMA
  3. SPIRIVA [Concomitant]
     Indication: ASTHMA
  4. SPIRIVA [Concomitant]
     Indication: BRONCHITIS
  5. FORMOTEROL FUMARATE [Concomitant]
     Indication: ASTHMA
  6. FORMOTEROL FUMARATE [Concomitant]
     Indication: BRONCHITIS
  7. SPIRIVA [Concomitant]
     Indication: EMPHYSEMA

REACTIONS (4)
  - URINARY INCONTINENCE [None]
  - FAECAL INCONTINENCE [None]
  - OVARIAN CANCER [None]
  - MALIGNANT PERITONEAL NEOPLASM [None]
